FAERS Safety Report 16991481 (Version 3)
Quarter: 2020Q1

REPORT INFORMATION
  Report Type: Spontaneous
  Country: US (occurrence: US)
  Receive Date: 20191104
  Receipt Date: 20200108
  Transmission Date: 20200409
  Serious: No
  Sender: FDA-Public Use
  Company Number: US-009507513-1910USA017394

PATIENT
  Sex: Female

DRUGS (1)
  1. NEXPLANON [Suspect]
     Active Substance: ETONOGESTREL
     Dosage: 68 MG, ONE TIME
     Route: 059
     Dates: start: 20180123

REACTIONS (3)
  - Vaginal haemorrhage [Unknown]
  - Migraine [Unknown]
  - Menometrorrhagia [Unknown]
